FAERS Safety Report 8398662-X (Version None)
Quarter: 2012Q2

REPORT INFORMATION
  Report Type: 
  Country: None (occurrence: None)
  Receive Date: 20120524
  Receipt Date: 20120515
  Transmission Date: 20120825
  Serious: Yes (Death, Hospitalization)
  Sender: FDA-Public Use
  Company Number: B0802818A

PATIENT
  Age: 44 Year
  Sex: Male

DRUGS (5)
  1. LOPINAVIR AND RITONAVIR [Suspect]
     Indication: HIV INFECTION
  2. ANTI-TB MEDICATION [Concomitant]
  3. ABACAVIR SULFATE [Suspect]
     Indication: HIV INFECTION
     Dosage: ORAL
     Route: 048
  4. GANCICLOVIR [Concomitant]
  5. EPIVIR [Suspect]
     Indication: HIV INFECTION

REACTIONS (7)
  - FISTULA [None]
  - IMMUNE RECONSTITUTION SYNDROME [None]
  - RESPIRATORY FAILURE [None]
  - THROMBOSIS [None]
  - DYSPHAGIA [None]
  - BACILLARY ANGIOMATOSIS [None]
  - PROCEDURAL HAEMORRHAGE [None]
